FAERS Safety Report 24206528 (Version 1)
Quarter: 2024Q3

REPORT INFORMATION
  Report Type: Report from Study
  Country: US (occurrence: US)
  Receive Date: 20240813
  Receipt Date: 20240813
  Transmission Date: 20241017
  Serious: Yes (Hospitalization)
  Sender: COVIS PHARMA
  Company Number: US-Covis Pharma GmbH-2024COV00973

PATIENT
  Age: 57 Year
  Sex: Male

DRUGS (11)
  1. PRILOSEC [Suspect]
     Active Substance: OMEPRAZOLE MAGNESIUM
     Route: 048
  2. TAGRISSO [Suspect]
     Active Substance: OSIMERTINIB
     Indication: Lung carcinoma cell type unspecified stage 0
     Route: 048
  3. NORCO(HYDROCODONE BITARTRATE, PARACETAMOL) [Concomitant]
  4. FLONASE(FLUTICASONE PROPIONATE) [Concomitant]
  5. METAMUCIL(PLANTAGO OVATA): [Concomitant]
  6. TAMSULOSIN HYDROCHLORIDE [Concomitant]
     Active Substance: TAMSULOSIN HYDROCHLORIDE
  7. TRIMETHOPRIM SULFATE [Concomitant]
     Active Substance: TRIMETHOPRIM SULFATE
  8. FOLIC ACID [Concomitant]
     Active Substance: FOLIC ACID
  9. DEXAMETHASONE [Concomitant]
     Active Substance: DEXAMETHASONE
  10. PROCHLORPERAZINE EDISYLATE [Concomitant]
     Active Substance: PROCHLORPERAZINE EDISYLATE
  11. LORAZEPAM [Concomitant]
     Active Substance: LORAZEPAM

REACTIONS (5)
  - Dehydration [Unknown]
  - Hypotension [Unknown]
  - Thrombosis [Unknown]
  - Fatigue [Unknown]
  - Dry mouth [Unknown]
